FAERS Safety Report 11334422 (Version 2)
Quarter: 2015Q3

REPORT INFORMATION
  Report Type: Spontaneous
  Country: US (occurrence: US)
  Receive Date: 20150804
  Receipt Date: 20150807
  Transmission Date: 20151125
  Serious: No
  Sender: FDA-Public Use
  Company Number: DE-ASTRAZENECA-2015SE74769

PATIENT
  Age: 58 Year
  Sex: Female

DRUGS (4)
  1. VIMOVO [Suspect]
     Active Substance: ESOMEPRAZOLE MAGNESIUM\NAPROXEN
     Indication: PLANTAR FASCIITIS
     Dosage: 1 DF TWO TIMES A DAY
     Route: 048
     Dates: start: 201507
  2. WATER PILL [Concomitant]
     Active Substance: UNSPECIFIED INGREDIENT
  3. VIMOVO [Suspect]
     Active Substance: ESOMEPRAZOLE MAGNESIUM\NAPROXEN
     Indication: PLANTAR FASCIITIS
     Dosage: 2 IN 1 DAYS
     Route: 048
  4. BLOOD PRESSURE PILL [Concomitant]

REACTIONS (2)
  - Headache [Recovered/Resolved]
  - Off label use [Unknown]

NARRATIVE: CASE EVENT DATE: 201507
